FAERS Safety Report 6247373-5 (Version None)
Quarter: 2009Q2

REPORT INFORMATION
  Report Type: 
  Country: None (occurrence: None)
  Receive Date: 20090626
  Receipt Date: 20090619
  Transmission Date: 20091009
  Serious: Yes (Hospitalization)
  Sender: FDA-Public Use
  Company Number: B0579779A

PATIENT
  Sex: Male

DRUGS (5)
  1. IMUREL [Suspect]
     Indication: MYOSITIS
     Dosage: 50MG THREE TIMES PER DAY
     Route: 048
     Dates: start: 20090220, end: 20090420
  2. AMOXICILLIN TRIHYDRATE [Suspect]
     Indication: DRUG USE FOR UNKNOWN INDICATION
     Route: 048
     Dates: start: 20090408, end: 20090421
  3. CORTICOTHERAPY [Concomitant]
     Dosage: 1MGKD UNKNOWN
     Route: 065
  4. METHOTREXATE [Concomitant]
     Route: 065
     Dates: start: 20070901, end: 20090201
  5. TEGELINE [Concomitant]
     Route: 065
     Dates: start: 20090201

REACTIONS (5)
  - BLOOD ALKALINE PHOSPHATASE INCREASED [None]
  - CELL DEATH [None]
  - CHOLESTASIS [None]
  - GAMMA-GLUTAMYLTRANSFERASE INCREASED [None]
  - TRANSAMINASES INCREASED [None]
